FAERS Safety Report 6135754-X (Version None)
Quarter: 2009Q1

REPORT INFORMATION
  Report Type: 
  Country: None (occurrence: None)
  Receive Date: 20090327
  Receipt Date: 20090320
  Transmission Date: 20090719
  Serious: Yes (Hospitalization, Other)
  Sender: FDA-Public Use
  Company Number: PHEH2009US02181

PATIENT
  Sex: Female
  Weight: 53 kg

DRUGS (9)
  1. RECLAST [Suspect]
     Indication: OSTEOPOROSIS
     Dosage: 5 MG YEARLY
     Route: 042
     Dates: start: 20081119
  2. XANAX [Concomitant]
     Route: 048
  3. LEXAPRO [Concomitant]
     Route: 048
  4. SPIRIVA [Concomitant]
  5. PROAIR NASAL [Concomitant]
  6. ADVAIR HFA [Concomitant]
  7. PEPCID [Concomitant]
     Route: 048
  8. PREMARIN [Concomitant]
     Route: 048
  9. CALCIUM [Concomitant]
     Route: 048

REACTIONS (12)
  - BONE PAIN [None]
  - CHRONIC OBSTRUCTIVE PULMONARY DISEASE [None]
  - MUSCLE SPASMS [None]
  - MYALGIA [None]
  - NAUSEA [None]
  - ORAL PAIN [None]
  - PYELONEPHRITIS [None]
  - PYREXIA [None]
  - RESPIRATORY TRACT INFECTION [None]
  - URINARY TRACT INFECTION [None]
  - VOMITING [None]
  - WHITE BLOOD CELL COUNT INCREASED [None]
